FAERS Safety Report 10885907 (Version 2)
Quarter: 2015Q1

REPORT INFORMATION
  Report Type: Report from Study
  Country: NL (occurrence: NL)
  Receive Date: 20150304
  Receipt Date: 20150318
  Transmission Date: 20150721
  Serious: Yes (Hospitalization)
  Sender: FDA-Public Use
  Company Number: NL-BAXTER-2015BAX010924

PATIENT
  Age: 70 Year
  Sex: Female

DRUGS (6)
  1. KIOVIG [Suspect]
     Active Substance: HUMAN IMMUNOGLOBULIN G
     Route: 042
     Dates: start: 20150224
  2. KIOVIG [Suspect]
     Active Substance: HUMAN IMMUNOGLOBULIN G
     Indication: MYASTHENIA GRAVIS
     Route: 042
     Dates: start: 20141127
  3. KIOVIG [Suspect]
     Active Substance: HUMAN IMMUNOGLOBULIN G
     Indication: MYASTHENIA GRAVIS
     Route: 042
     Dates: start: 20141127
  4. KIOVIG [Suspect]
     Active Substance: HUMAN IMMUNOGLOBULIN G
     Route: 042
     Dates: start: 20150224
  5. KIOVIG [Suspect]
     Active Substance: HUMAN IMMUNOGLOBULIN G
     Indication: OFF LABEL USE
     Route: 042
     Dates: start: 20150123
  6. KIOVIG [Suspect]
     Active Substance: HUMAN IMMUNOGLOBULIN G
     Indication: OFF LABEL USE
     Route: 042
     Dates: start: 20150123

REACTIONS (1)
  - Myasthenia gravis [Recovering/Resolving]

NARRATIVE: CASE EVENT DATE: 20150220
